FAERS Safety Report 5056163-0 (Version None)
Quarter: 2006Q3

REPORT INFORMATION
  Report Type: 
  Country: None (occurrence: None)
  Receive Date: 20060720
  Receipt Date: 20060718
  Transmission Date: 20061208
  Serious: Yes (Life-Threatening)
  Sender: FDA-Public Use
  Company Number: 454525

PATIENT
  Age: 65 Year
  Sex: Female

DRUGS (3)
  1. ARTIST [Suspect]
     Indication: ANGINA PECTORIS
     Route: 048
     Dates: start: 20040101, end: 20051111
  2. CALBLOCK [Suspect]
     Dosage: 8MG PER DAY
     Route: 048
     Dates: start: 20040910, end: 20051111
  3. CARDENALIN [Suspect]
     Dosage: 2MG PER DAY
     Route: 048
     Dates: start: 20050114, end: 20051111

REACTIONS (8)
  - BRADYCARDIA [None]
  - CARDIAC ARREST [None]
  - DIZZINESS POSTURAL [None]
  - HAEMODYNAMIC INSTABILITY [None]
  - HYPOTENSION [None]
  - NAUSEA [None]
  - OLIGURIA [None]
  - SICK SINUS SYNDROME [None]
